APPROVED DRUG PRODUCT: PROPRANOLOL HYDROCHLORIDE
Active Ingredient: PROPRANOLOL HYDROCHLORIDE
Strength: 20MG
Dosage Form/Route: TABLET;ORAL
Application: A070176 | Product #001 | TE Code: AB
Applicant: WATSON LABORATORIES INC
Approved: May 13, 1986 | RLD: No | RS: No | Type: RX